FAERS Safety Report 17791554 (Version 1)
Quarter: 2020Q2

REPORT INFORMATION
  Report Type: Report from Study
  Country: JP (occurrence: JP)
  Receive Date: 20200515
  Receipt Date: 20200515
  Transmission Date: 20200714
  Serious: Yes (Other)
  Sender: FDA-Public Use
  Company Number: JP-MYLANLABS-2020M1047965

PATIENT
  Age: 38 Year
  Sex: Male

DRUGS (10)
  1. RITUXIMAB. [Suspect]
     Active Substance: RITUXIMAB
     Dosage: 375 MILLIGRAM/SQ. METER, BIWEEKLY
     Route: 042
  2. DOXORUBICIN [Suspect]
     Active Substance: DOXORUBICIN
     Indication: DIFFUSE LARGE B-CELL LYMPHOMA
     Dosage: 50 MILLIGRAM/SQ. METER, ON DAY 1 OF CYCLE 1 AND ON DAY 2 OF CYCLES 2, 3 AND 6-8
     Route: 042
  3. CYTARABINE. [Suspect]
     Active Substance: CYTARABINE
     Indication: DIFFUSE LARGE B-CELL LYMPHOMA
     Dosage: 40 MILLIGRAM, BEFORE THE START OF CYCLES 2, 3, 7 AND 8 OF R-CHOP
     Route: 037
  4. METHOTREXATE. [Suspect]
     Active Substance: METHOTREXATE
     Indication: DIFFUSE LARGE B-CELL LYMPHOMA
     Dosage: 3.5 G/M 2 FOR 3 HOURS ON DAY 2 OF CYCLES 4 AND 5
     Route: 042
  5. RITUXIMAB. [Suspect]
     Active Substance: RITUXIMAB
     Indication: DIFFUSE LARGE B-CELL LYMPHOMA
     Dosage: 375 MILLIGRAM/SQ. METER, ON DAY 8 OF CYCLE 1 AND ON DAY 1 OF CYCLES 2-8
     Route: 042
  6. VINCRISTINE [Suspect]
     Active Substance: VINCRISTINE
     Indication: DIFFUSE LARGE B-CELL LYMPHOMA
     Dosage: 1.4 MILLIGRAM/SQ. METER, (MAXIMUM 2.0 MG) ON DAY 1 OF CYCLE 1 AND ON DAY 2 OF CYCLES 2, 3 AND 6-8
     Route: 042
  7. CYCLOPHOSPHAMIDE. [Suspect]
     Active Substance: CYCLOPHOSPHAMIDE
     Indication: DIFFUSE LARGE B-CELL LYMPHOMA
     Dosage: 750 MILLIGRAM/SQ. METER, ON DAY 1 OF CYCLE 1 AND ON DAY 2 OF CYCLES 2, 3 AND 6-8
     Route: 042
  8. PREDNISOLONE. [Suspect]
     Active Substance: PREDNISOLONE
     Indication: DIFFUSE LARGE B-CELL LYMPHOMA
     Dosage: 10 MILLIGRAM, BEFORE THE START OF CYCLES 2, 3, 7 AND 8 OF R-CHOP
     Route: 037
  9. METHOTREXATE. [Suspect]
     Active Substance: METHOTREXATE
     Indication: DIFFUSE LARGE B-CELL LYMPHOMA
     Dosage: 15 MILLIGRAM, BEFORE THE START OF CYCLES 2, 3, 7 AND 8 OF R-CHOP
     Route: 037
  10. PREDNISOLONE. [Suspect]
     Active Substance: PREDNISOLONE
     Indication: DIFFUSE LARGE B-CELL LYMPHOMA
     Dosage: 100 MILLIGRAM, QD, ON DAYS 1-5 OF CYCLE 1 AND ON DAYS 2-6 OF CYCLES 2, 3 AND 6-8 EVERY 3 WEEKS
     Route: 048

REACTIONS (2)
  - Leukopenia [Unknown]
  - Neutropenia [Unknown]
